FAERS Safety Report 18820018 (Version 1)
Quarter: 2021Q1

REPORT INFORMATION
  Report Type: Spontaneous
  Country: IT (occurrence: IT)
  Receive Date: 20210202
  Receipt Date: 20210202
  Transmission Date: 20210419
  Serious: Yes (Other)
  Sender: FDA-Public Use
  Company Number: NVSC2021IT020075

PATIENT
  Age: 54 Year
  Sex: Female

DRUGS (2)
  1. AUBAGIO [Concomitant]
     Active Substance: TERIFLUNOMIDE
     Indication: MULTIPLE SCLEROSIS
     Dosage: (DATE OF LAST ADMINISTRATION: 21 NOV 2020)
     Route: 048
     Dates: start: 20201116
  2. GILENYA [Suspect]
     Active Substance: FINGOLIMOD HYDROCHLORIDE
     Indication: MULTIPLE SCLEROSIS
     Dosage: (DATE OF LAST ADMINISTRATION: 17 APR 2019)
     Route: 065
     Dates: start: 20140612

REACTIONS (1)
  - Breast cancer [Not Recovered/Not Resolved]
